FAERS Safety Report 6409735-2 (Version None)
Quarter: 2009Q4

REPORT INFORMATION
  Report Type: 
  Country: None (occurrence: None)
  Receive Date: 20091022
  Receipt Date: 20091009
  Transmission Date: 20100525
  Serious: Yes (Hospitalization)
  Sender: FDA-Public Use
  Company Number: PHHY2009CA39050

PATIENT
  Sex: Male

DRUGS (1)
  1. EXJADE [Suspect]
     Indication: SYSTEMIC MASTOCYTOSIS
     Dosage: UNK
     Dates: start: 20090820

REACTIONS (2)
  - LIVER DISORDER [None]
  - SPLENECTOMY [None]
